FAERS Safety Report 21638417 (Version 1)
Quarter: 2022Q4

REPORT INFORMATION
  Report Type: Spontaneous
  Country: AU (occurrence: AU)
  Receive Date: 20221124
  Receipt Date: 20221124
  Transmission Date: 20230112
  Serious: Yes (Other)
  Sender: FDA-Public Use
  Company Number: AU-PFIZER INC-PV202200106934

PATIENT
  Age: 72 Year
  Sex: Female

DRUGS (2)
  1. METHOTREXATE SODIUM [Suspect]
     Active Substance: METHOTREXATE SODIUM
     Indication: Arthritis
     Dosage: 10 MG
     Dates: start: 19880101, end: 19960303
  2. PIROXICAM [Concomitant]
     Active Substance: PIROXICAM
     Indication: Arthritis
     Dosage: 1 DF
     Dates: start: 19880101

REACTIONS (16)
  - Erythema multiforme [Recovered/Resolved]
  - Pulmonary oedema [Recovered/Resolved]
  - Pancytopenia [Recovered/Resolved]
  - Thrombocytopenia [Recovered/Resolved]
  - Chest pain [Recovered/Resolved]
  - Gravitational oedema [Recovered/Resolved]
  - Hepatic function abnormal [Recovered/Resolved]
  - Lymphadenopathy [Recovered/Resolved]
  - Palpitations [Recovered/Resolved]
  - Pleuritic pain [Recovered/Resolved]
  - Stomatitis [Recovered/Resolved]
  - Tachycardia [Recovered/Resolved]
  - Megakaryocytes increased [Unknown]
  - Atrial flutter [Unknown]
  - Blood folate decreased [Unknown]
  - Off label use [Unknown]

NARRATIVE: CASE EVENT DATE: 19960305
